FAERS Safety Report 12550463 (Version 1)
Quarter: 2016Q3

REPORT INFORMATION
  Report Type: Spontaneous
  Country: GB (occurrence: GB)
  Receive Date: 20160712
  Receipt Date: 20160712
  Transmission Date: 20161109
  Serious: Yes (Other)
  Sender: FDA-Public Use
  Company Number: GB-TEVA-673606ACC

PATIENT
  Age: 56 Year
  Sex: Female

DRUGS (1)
  1. WARFARIN SODIUM. [Suspect]
     Active Substance: WARFARIN SODIUM
     Dosage: 3 MILLIGRAM DAILY; AS DIRECTED
     Route: 048
     Dates: start: 20160613, end: 20160619

REACTIONS (3)
  - Product quality issue [Unknown]
  - Coagulation time shortened [Recovered/Resolved]
  - Product colour issue [Unknown]

NARRATIVE: CASE EVENT DATE: 20160613
